FAERS Safety Report 20997983 (Version 1)
Quarter: 2022Q2

REPORT INFORMATION
  Report Type: Spontaneous
  Country: US (occurrence: None)
  Receive Date: 20220622
  Receipt Date: 20220622
  Transmission Date: 20220721
  Serious: Yes (Other)
  Sender: FDA-Public Use
  Company Number: None

PATIENT
  Age: 21 Year
  Sex: Female
  Weight: 67.5 kg

DRUGS (1)
  1. GAMMAGARD LIQUID [Suspect]
     Active Substance: HUMAN IMMUNOGLOBULIN G
     Indication: Chronic inflammatory demyelinating polyradiculoneuropathy
     Dosage: OTHER FREQUENCY : ONCE EVERY 4 WEEKS;?
     Route: 042
     Dates: start: 20190121

REACTIONS (4)
  - Chest discomfort [None]
  - Ear pruritus [None]
  - Incorrect drug administration rate [None]
  - Infusion related reaction [None]

NARRATIVE: CASE EVENT DATE: 20220618
